FAERS Safety Report 10204887 (Version 2)
Quarter: 2014Q2

REPORT INFORMATION
  Report Type: Spontaneous
  Country: CA (occurrence: CA)
  Receive Date: 20140529
  Receipt Date: 20140529
  Transmission Date: 20141212
  Serious: Yes (Hospitalization)
  Sender: FDA-Public Use
  Company Number: CA-AMGEN-CANSP2014014978

PATIENT
  Age: 16 Year
  Sex: Female

DRUGS (8)
  1. ENBREL [Suspect]
     Indication: JUVENILE IDIOPATHIC ARTHRITIS
     Dosage: 25 MG, 2 TIMES/WK
     Route: 065
     Dates: start: 20140110
  2. METHOTREXATE [Concomitant]
     Dosage: 2.5 MG,QWK 6 TABLETS
     Route: 048
  3. LEUCOVORIN                         /00566701/ [Concomitant]
     Dosage: 5 MG, QWK 3 TABLETS
  4. PROSEC [Concomitant]
     Dosage: 20 MG, BID 1 TABLET
  5. GRANISETRON                        /01178102/ [Concomitant]
     Dosage: 1 MG, BID 1 TABLET
  6. DICLOFENAC [Concomitant]
     Dosage: 75 MG, BID 1 TABLET
  7. DIFFERIN [Concomitant]
     Dosage: 0.1 %, QD
  8. AMOXIL                             /00249601/ [Concomitant]
     Dosage: 10 %, QD

REACTIONS (13)
  - Diarrhoea [Not Recovered/Not Resolved]
  - Injection site pruritus [Unknown]
  - Injection site swelling [Unknown]
  - Injection site erythema [Unknown]
  - Injection site reaction [Recovered/Resolved]
  - Nasopharyngitis [Unknown]
  - Nasal discharge discolouration [Unknown]
  - Nausea [Recovered/Resolved]
  - Decreased appetite [Recovered/Resolved]
  - Oropharyngeal pain [Recovered/Resolved]
  - Ear pain [Recovered/Resolved]
  - Rhinorrhoea [Not Recovered/Not Resolved]
  - Malaise [Unknown]
